FAERS Safety Report 22763902 (Version 2)
Quarter: 2023Q4

REPORT INFORMATION
  Report Type: Spontaneous
  Country: CH (occurrence: CH)
  Receive Date: 20230730
  Receipt Date: 20231010
  Transmission Date: 20240110
  Serious: Yes (Other)
  Sender: FDA-Public Use
  Company Number: CH-MLMSERVICE-20230713-4413406-1

PATIENT
  Age: 71 Year
  Sex: Female

DRUGS (2)
  1. TIMOLOL [Suspect]
     Active Substance: TIMOLOL
     Indication: Ocular hypertension
     Route: 047
  2. TIMOLOL [Suspect]
     Active Substance: TIMOLOL

REACTIONS (4)
  - Drug-genetic interaction [Unknown]
  - Syncope [Unknown]
  - Bradycardia [Recovered/Resolved]
  - Hypotension [Recovered/Resolved]
